FAERS Safety Report 8704563 (Version 2)
Quarter: 2013Q2

REPORT INFORMATION
  Report Type: Report from Study
  Country: US (occurrence: US)
  Receive Date: 20120803
  Receipt Date: 20130523
  Transmission Date: 20140414
  Serious: Yes (Hospitalization)
  Sender: FDA-Public Use
  Company Number: PHEH2012US015112

PATIENT
  Age: 18 Year
  Sex: Female
  Weight: 69.84 kg

DRUGS (2)
  1. GILENYA [Suspect]
     Indication: MULTIPLE SCLEROSIS
     Dosage: 0.5 MG, QD
     Route: 048
     Dates: start: 20120412
  2. KEPPRA [Concomitant]
     Dosage: UNK UKN, UNK

REACTIONS (1)
  - Convulsion [Not Recovered/Not Resolved]
